FAERS Safety Report 8058910-2 (Version None)
Quarter: 2012Q1

REPORT INFORMATION
  Report Type: 
  Country: None (occurrence: None)
  Receive Date: 20120120
  Receipt Date: 20110930
  Transmission Date: 20120608
  Serious: No
  Sender: FDA-Public Use
  Company Number: US-BRISTOL-MYERS SQUIBB COMPANY-16120503

PATIENT
  Age: 75 Year
  Sex: Male

DRUGS (2)
  1. YERVOY [Suspect]
     Dosage: 3 TREATMENTS
  2. ERYTHROMYCIN [Concomitant]

REACTIONS (4)
  - OCULAR HYPERAEMIA [None]
  - VISION BLURRED [None]
  - EYE PRURITUS [None]
  - RASH PRURITIC [None]
